FAERS Safety Report 14662103 (Version 1)
Quarter: 2018Q1

REPORT INFORMATION
  Report Type: Report from Study
  Country: US (occurrence: US)
  Receive Date: 20180321
  Receipt Date: 20180321
  Transmission Date: 20180509
  Serious: Yes (Other)
  Sender: FDA-Public Use
  Company Number: US-ROCHE-2091457

PATIENT

DRUGS (38)
  1. HEP-LOCK [Concomitant]
     Active Substance: HEPARIN SODIUM
     Route: 042
     Dates: start: 20150714, end: 20150714
  2. HEP-LOCK [Concomitant]
     Active Substance: HEPARIN SODIUM
     Route: 042
     Dates: start: 20150908, end: 20150908
  3. METHYLPREDNISOLONE. [Suspect]
     Active Substance: METHYLPREDNISOLONE
     Indication: CHRONIC LYMPHOCYTIC LEUKAEMIA
     Dosage: (1000 MG/M2 FROM DAYS 1-3 IN 28 DAYS CYCLE FOR 1-4 CYCLES: AS PER PROTOCOL)
     Route: 042
  4. ALLOPURINOL. [Concomitant]
     Active Substance: ALLOPURINOL
     Route: 048
     Dates: start: 20150523, end: 20150623
  5. HEP-LOCK [Concomitant]
     Active Substance: HEPARIN SODIUM
     Route: 042
     Dates: start: 20150526, end: 20150528
  6. HEP-LOCK [Concomitant]
     Active Substance: HEPARIN SODIUM
     Route: 042
     Dates: start: 20150629, end: 20150629
  7. HEP-LOCK [Concomitant]
     Active Substance: HEPARIN SODIUM
     Route: 042
     Dates: start: 20150720, end: 20150724
  8. ACYCLOVIR. [Concomitant]
     Active Substance: ACYCLOVIR
     Indication: HERPES ZOSTER
  9. HEP-LOCK [Concomitant]
     Active Substance: HEPARIN SODIUM
     Route: 042
     Dates: start: 20150727, end: 20150727
  10. HEP-LOCK [Concomitant]
     Active Substance: HEPARIN SODIUM
     Route: 042
     Dates: start: 20150831, end: 20150831
  11. LIDOCAINE. [Concomitant]
     Active Substance: LIDOCAINE
     Route: 023
     Dates: start: 20150526, end: 20150526
  12. VITAMIN B12 [Concomitant]
     Active Substance: CYANOCOBALAMIN
     Route: 048
     Dates: start: 20150821, end: 20150828
  13. OBINUTUZUMAB. [Suspect]
     Active Substance: OBINUTUZUMAB
     Indication: CHRONIC LYMPHOCYTIC LEUKAEMIA
     Dosage: 100 MG, (CYCLE 1 DAY 1 (C1D1): 100 MG, C1D2: 900 MG, C1 D8 AND D15 1000 MG FOLLOWED BY 1000 MG ON CY
     Route: 042
  14. HEP-LOCK [Concomitant]
     Active Substance: HEPARIN SODIUM
     Route: 042
     Dates: start: 20150622, end: 20150626
  15. LIDOCAINE. [Concomitant]
     Active Substance: LIDOCAINE
     Route: 023
     Dates: start: 20150609, end: 20150609
  16. VITAMIN B12 [Concomitant]
     Active Substance: CYANOCOBALAMIN
     Route: 048
     Dates: start: 20150913
  17. CELEXA [Concomitant]
     Active Substance: CITALOPRAM HYDROBROMIDE
     Indication: DEPRESSION
     Route: 048
     Dates: start: 20150605, end: 20150623
  18. HEP-LOCK [Concomitant]
     Active Substance: HEPARIN SODIUM
     Route: 042
     Dates: start: 20150706, end: 20150706
  19. HEP-LOCK [Concomitant]
     Active Substance: HEPARIN SODIUM
     Route: 042
     Dates: start: 20150803, end: 20150803
  20. LIDOCAINE. [Concomitant]
     Active Substance: LIDOCAINE
     Route: 023
     Dates: start: 20150818, end: 20150818
  21. SUDAFED [Concomitant]
     Active Substance: PSEUDOEPHEDRINE HYDROCHLORIDE
     Indication: SINUS CONGESTION
     Dosage: PRN
     Route: 048
     Dates: start: 20150304, end: 20150818
  22. GLUTATHIONE [Concomitant]
     Active Substance: GLUTATHIONE
  23. SEPTRA DS [Concomitant]
     Active Substance: SULFAMETHOXAZOLE\TRIMETHOPRIM
     Indication: PNEUMONIA
     Dosage: ON MON TUE
     Route: 048
     Dates: start: 20150528
  24. HEP-LOCK [Concomitant]
     Active Substance: HEPARIN SODIUM
     Route: 042
     Dates: start: 20150615, end: 20150615
  25. HEP-LOCK [Concomitant]
     Active Substance: HEPARIN SODIUM
     Route: 042
     Dates: start: 20150810, end: 20150810
  26. HEP-LOCK [Concomitant]
     Active Substance: HEPARIN SODIUM
     Route: 042
     Dates: start: 20150817, end: 20150821
  27. LEXAPRO [Concomitant]
     Active Substance: ESCITALOPRAM OXALATE
     Indication: DEPRESSION
     Route: 048
     Dates: start: 20140902
  28. ACTIVE HEXOSE CORRELATED COMPOUND [Concomitant]
  29. NEXIUM [Concomitant]
     Active Substance: ESOMEPRAZOLE MAGNESIUM
     Indication: ABDOMINAL DISTENSION
     Route: 048
     Dates: start: 20140605
  30. ACYCLOVIR. [Concomitant]
     Active Substance: ACYCLOVIR
     Indication: HERPES VIRUS INFECTION
     Route: 048
     Dates: start: 20150526
  31. DIFLUCAN [Concomitant]
     Active Substance: FLUCONAZOLE
     Indication: ABDOMINAL DISTENSION
     Route: 048
     Dates: start: 20150530
  32. DIFLUCAN [Concomitant]
     Active Substance: FLUCONAZOLE
     Route: 048
     Dates: start: 20151015
  33. DIAZEPAM. [Concomitant]
     Active Substance: DIAZEPAM
     Indication: ANXIETY
     Route: 048
     Dates: start: 20140131
  34. HEP-LOCK [Concomitant]
     Active Substance: HEPARIN SODIUM
     Route: 042
     Dates: start: 20150602, end: 20150602
  35. HEP-LOCK [Concomitant]
     Active Substance: HEPARIN SODIUM
     Route: 042
     Dates: start: 20150609, end: 20150609
  36. HEP-LOCK [Concomitant]
     Active Substance: HEPARIN SODIUM
     Route: 042
     Dates: start: 20150824, end: 20150824
  37. LIDOCAINE. [Concomitant]
     Active Substance: LIDOCAINE
     Route: 023
     Dates: start: 20150623, end: 20150623
  38. LIDOCAINE/PRILOCAINE [Concomitant]
     Active Substance: LIDOCAINE\PRILOCAINE
     Route: 061
     Dates: start: 20150618, end: 20150818

REACTIONS (1)
  - Hypophosphataemia [Recovered/Resolved]

NARRATIVE: CASE EVENT DATE: 20150527
